FAERS Safety Report 9076885 (Version 1)
Quarter: 2013Q1

REPORT INFORMATION
  Report Type: Spontaneous
  Country: US (occurrence: US)
  Receive Date: 20130129
  Receipt Date: 20130129
  Transmission Date: 20140127
  Serious: No
  Sender: FDA-Public Use
  Company Number: US-ABBOTT-12P-163-0943251-00

PATIENT
  Sex: Female
  Weight: 60.84 kg

DRUGS (4)
  1. HUMIRA 40 MG/ 0.8 ML PRE-FILLED SYRINGE [Suspect]
     Indication: RHEUMATOID ARTHRITIS
     Dates: start: 2004, end: 201206
  2. BENECAR [Concomitant]
     Indication: BLOOD PRESSURE
  3. VAGINAL HORMONE REPLACEMENT THERAPY [Concomitant]
     Indication: PRODUCT USED FOR UNKNOWN INDICATION
  4. ESTRACE [Concomitant]
     Indication: PRODUCT USED FOR UNKNOWN INDICATION

REACTIONS (5)
  - Cyst [Not Recovered/Not Resolved]
  - Pulmonary mass [Not Recovered/Not Resolved]
  - Tonsillar hypertrophy [Unknown]
  - Fatigue [Unknown]
  - Dyspnoea [Not Recovered/Not Resolved]
